FAERS Safety Report 6809239-9 (Version None)
Quarter: 2010Q2

REPORT INFORMATION
  Report Type: 
  Country: None (occurrence: None)
  Receive Date: 20100630
  Receipt Date: 20100621
  Transmission Date: 20101027
  Serious: Yes (Hospitalization, Other)
  Sender: FDA-Public Use
  Company Number: US-BAYER-200911634NA

PATIENT
  Age: 24 Year
  Sex: Female
  Weight: 59 kg

DRUGS (2)
  1. YAZ [Suspect]
     Indication: CONTRACEPTION
     Route: 048
     Dates: start: 20080601, end: 20080810
  2. YASMIN [Suspect]
     Indication: CONTRACEPTION
     Route: 048
     Dates: start: 20080601, end: 20080801

REACTIONS (8)
  - ANXIETY [None]
  - CEREBROVASCULAR ACCIDENT [None]
  - COGNITIVE DISORDER [None]
  - FATIGUE [None]
  - PAIN [None]
  - PARALYSIS [None]
  - SPEECH DISORDER [None]
  - VERTIGO [None]
